FAERS Safety Report 17030072 (Version 2)
Quarter: 2019Q4

REPORT INFORMATION
  Report Type: Spontaneous
  Country: US (occurrence: US)
  Receive Date: 20191114
  Receipt Date: 20191211
  Transmission Date: 20200122
  Serious: Yes (Hospitalization)
  Sender: FDA-Public Use
  Company Number: US-APOTEX-2019AP023489

PATIENT
  Sex: Female

DRUGS (2)
  1. FENTANYL. [Suspect]
     Active Substance: FENTANYL
     Indication: PANCREATITIS CHRONIC
  2. FENTANYL. [Suspect]
     Active Substance: FENTANYL
     Indication: PAIN
     Dosage: 1 DF, EVERY 72 HOURS SINCE 6 MONTHS
     Route: 062

REACTIONS (6)
  - Insomnia [Unknown]
  - Device leakage [Unknown]
  - Product physical issue [Unknown]
  - Product substitution issue [Unknown]
  - Product adhesion issue [Unknown]
  - Drug ineffective [Unknown]
